FAERS Safety Report 10612428 (Version 5)
Quarter: 2015Q1

REPORT INFORMATION
  Report Type: Report from Study
  Country: US (occurrence: US)
  Receive Date: 20141127
  Receipt Date: 20150113
  Transmission Date: 20150720
  Serious: Yes (Hospitalization)
  Sender: FDA-Public Use
  Company Number: US-BIOGENIDEC-2014BI080346

PATIENT
  Age: 34 Year
  Sex: Female
  Weight: 86 kg

DRUGS (15)
  1. VICODIN [Concomitant]
     Active Substance: ACETAMINOPHEN\HYDROCODONE BITARTRATE
  2. FLEXERIL [Concomitant]
     Active Substance: CYCLOBENZAPRINE HYDROCHLORIDE
  3. IBUPROFEN. [Concomitant]
     Active Substance: IBUPROFEN
  4. JUNEL FE 1/20 [Concomitant]
     Active Substance: ETHINYL ESTRADIOL\NORETHINDRONE ACETATE
  5. BUPROPION XL [Concomitant]
     Active Substance: BUPROPION
  6. VITAMIN C [Concomitant]
     Active Substance: ASCORBIC ACID
  7. NAPROXEN. [Concomitant]
     Active Substance: NAPROXEN
  8. TRAMADOL [Concomitant]
     Active Substance: TRAMADOL
  9. TYSABRI [Suspect]
     Active Substance: NATALIZUMAB
     Indication: MULTIPLE SCLEROSIS
     Route: 042
     Dates: start: 20120817
  10. GABAPENTIN. [Concomitant]
     Active Substance: GABAPENTIN
  11. VITAMIN D3 [Concomitant]
     Active Substance: CHOLECALCIFEROL
  12. GILDESS FE [Concomitant]
     Active Substance: ETHINYL ESTRADIOL\NORETHINDRONE
  13. TOPAMAX [Concomitant]
     Active Substance: TOPIRAMATE
  14. ZYRTEC [Concomitant]
     Active Substance: CETIRIZINE HYDROCHLORIDE
  15. VITAMIN B12 [Concomitant]
     Active Substance: CYANOCOBALAMIN

REACTIONS (3)
  - Endometriosis [Recovered/Resolved]
  - Colposcopy [Unknown]
  - Cervix carcinoma stage 0 [Recovered/Resolved]

NARRATIVE: CASE EVENT DATE: 20120911
